FAERS Safety Report 10169059 (Version 1)
Quarter: 2014Q2

REPORT INFORMATION
  Report Type: Spontaneous
  Country: US (occurrence: None)
  Receive Date: 20140509
  Receipt Date: 20140509
  Transmission Date: 20141212
  Serious: Yes (Hospitalization)
  Sender: FDA-Public Use
  Company Number: UTC-048267

PATIENT
  Age: 39 Year
  Sex: Female
  Weight: 139.2 kg

DRUGS (2)
  1. REMODULIN [Suspect]
     Indication: PULMONARY ARTERIAL HYPERTENSION
     Dosage: 97.92 UG/KG (0.068 UG/KG, 1 IN 1 MIN) INTRAVENOUS DRIP
     Route: 041
     Dates: start: 20120706
  2. WARFARIN(WARFARIN) [Concomitant]

REACTIONS (1)
  - Pneumonia [None]
